FAERS Safety Report 24681904 (Version 1)
Quarter: 2024Q4

REPORT INFORMATION
  Report Type: Spontaneous
  Country: CN (occurrence: CN)
  Receive Date: 20241130
  Receipt Date: 20241130
  Transmission Date: 20250115
  Serious: Yes (Other)
  Sender: ALEXION PHARMACEUTICALS
  Company Number: CN-ASTRAZENECA-202411CHN020874CN

PATIENT
  Age: 80 Year
  Weight: 46 kg

DRUGS (1)
  1. DAPAGLIFLOZIN [Suspect]
     Active Substance: DAPAGLIFLOZIN
     Indication: Diabetes mellitus
     Dosage: 10 MILLIGRAM

REACTIONS (3)
  - Dizziness [Recovered/Resolved]
  - Palpitations [Recovered/Resolved]
  - Cardiac disorder [Unknown]
